FAERS Safety Report 4370833-9 (Version None)
Quarter: 2004Q2

REPORT INFORMATION
  Report Type: 
  Country: None (occurrence: None)
  Receive Date: 20040602
  Receipt Date: 20040602
  Transmission Date: 20050107
  Serious: Yes (Hospitalization)
  Sender: FDA-Public Use
  Company Number: None

PATIENT
  Age: 61 Year
  Sex: Male
  Weight: 69.9 kg

DRUGS (17)
  1. PACLITAXEL [Suspect]
  2. DEXAMETHASONE TAB [Concomitant]
  3. ALBUTEROL [Concomitant]
  4. ACETYLCYSTEINE [Concomitant]
  5. RANITIDINE [Concomitant]
  6. PREDNISONE [Concomitant]
  7. NICOTINE [Concomitant]
  8. HYDROXYZINE [Concomitant]
  9. PROCHLORPERAZINE [Concomitant]
  10. ALBUTEROL/IPRATROPIUM [Concomitant]
  11. CODEINE [Concomitant]
  12. PIPERACILLIN/TAZOBACTAM [Concomitant]
  13. DIPHENHYDRAMINE HCL [Concomitant]
  14. FAMOTIDINE [Concomitant]
  15. DEXAMETHASONE [Concomitant]
  16. GRANISETRON [Concomitant]
  17. CARBOPLATIN [Concomitant]

REACTIONS (4)
  - BACK PAIN [None]
  - FLUSHING [None]
  - TACHYCARDIA [None]
  - TACHYPNOEA [None]
